FAERS Safety Report 19836280 (Version 5)
Quarter: 2021Q4

REPORT INFORMATION
  Report Type: Spontaneous
  Country: US (occurrence: US)
  Receive Date: 20210916
  Receipt Date: 20211112
  Transmission Date: 20220303
  Serious: Yes (Life-Threatening, Hospitalization, Other)
  Sender: FDA-Public Use
  Company Number: US-AUROBINDO-AUR-APL-2021-039013

PATIENT
  Age: 22 Year
  Sex: Male

DRUGS (4)
  1. ACETAMINOPHEN [Suspect]
     Active Substance: ACETAMINOPHEN
     Indication: Product used for unknown indication
     Dosage: 5 DOSAGE FORM(TOTAL)
     Route: 048
  2. ELEXACAFTOR [Concomitant]
     Active Substance: ELEXACAFTOR
     Indication: Cystic fibrosis
     Dosage: UNK
     Route: 065
  3. TEZACAFTOR [Concomitant]
     Active Substance: TEZACAFTOR
     Indication: Cystic fibrosis
     Dosage: UNK
     Route: 065
  4. IVACAFTOR [Concomitant]
     Active Substance: IVACAFTOR
     Indication: Cystic fibrosis
     Dosage: UNK
     Route: 065

REACTIONS (9)
  - Hepatic encephalopathy [Recovering/Resolving]
  - Drug-induced liver injury [Recovering/Resolving]
  - Acute kidney injury [Recovering/Resolving]
  - Lactic acidosis [Recovering/Resolving]
  - Hepatotoxicity [Recovering/Resolving]
  - Acute hepatic failure [Recovered/Resolved]
  - Hepatocellular injury [Unknown]
  - Hepatic steatosis [Unknown]
  - Inflammation [Unknown]
